FAERS Safety Report 8421641-0 (Version None)
Quarter: 2012Q2

REPORT INFORMATION
  Report Type: 
  Country: None (occurrence: None)
  Receive Date: 20120608
  Receipt Date: 20120604
  Transmission Date: 20120825
  Serious: Yes (Other)
  Sender: FDA-Public Use
  Company Number: US-TEVA-341263USA

PATIENT
  Sex: Male
  Weight: 72.64 kg

DRUGS (3)
  1. GABAPENTIN [Suspect]
     Indication: BACK PAIN
  2. PREGABALIN [Suspect]
     Dosage: 150 MILLIGRAM;
     Route: 048
     Dates: start: 20120101
  3. METOPROLOL [Suspect]

REACTIONS (3)
  - HOMICIDAL IDEATION [None]
  - DIZZINESS [None]
  - FEELING ABNORMAL [None]
